FAERS Safety Report 9805595 (Version 2)
Quarter: 2014Q1

REPORT INFORMATION
  Report Type: Spontaneous
  Country: GB (occurrence: GB)
  Receive Date: 20140109
  Receipt Date: 20140109
  Transmission Date: 20141002
  Serious: Yes (Other)
  Sender: FDA-Public Use
  Company Number: GB-BEH-2013036200

PATIENT
  Age: 65 Year
  Sex: Male
  Weight: 111 kg

DRUGS (9)
  1. PRIVIGEN [Suspect]
     Indication: CHRONIC INFLAMMATORY DEMYELINATING POLYRADICULONEUROPATHY
     Dosage: 180 G  OVER TWO DAYS
     Route: 042
     Dates: start: 20121217
  2. PRIVIGEN [Suspect]
     Dosage: BATCH ADMINISTERED  8 TIMES
     Dates: start: 20121217, end: 20121218
  3. PRIVIGEN [Suspect]
     Dosage: BATCH ADMINISTERED  1 TIME1
     Dates: start: 20121217, end: 20121218
  4. PRIVIGEN [Suspect]
     Dosage: BATCH ADMINISTERED  8 TIMES X 20 G
     Dates: start: 20130129, end: 20130130
  5. PRIVIGEN [Suspect]
     Dosage: BATCH ADMINISTERED  1 TIME X 10 G
     Dates: start: 20130129, end: 20130130
  6. PRIVIGEN [Suspect]
     Dosage: BATCH ADMINISTERED 2 TIMES X 10 G
     Dates: start: 20130311, end: 20130312
  7. PRIVIGEN [Suspect]
     Dosage: BATCH ADMINISTERED  8 TIMES X 20 G
     Dates: start: 20130311, end: 20130312
  8. PRIVIGEN [Suspect]
     Dosage: BATCH ADMINISTERED 2 TIMES X 10 G
     Dates: start: 20130827, end: 20130828
  9. PRIVIGEN [Suspect]
     Dosage: BATCH ADMINISTERED  8 TIMES X 20 G
     Dates: start: 20130827, end: 20130828

REACTIONS (13)
  - Back pain [Recovered/Resolved]
  - Myalgia [Recovered/Resolved]
  - Bone pain [Recovered/Resolved]
  - Pain in extremity [Recovered/Resolved]
  - Muscular weakness [Recovered/Resolved]
  - Pain [Recovered/Resolved]
  - Feeling abnormal [Recovered/Resolved]
  - Bedridden [Recovered/Resolved]
  - Myalgia [Recovered/Resolved]
  - Gait disturbance [Recovered/Resolved]
  - Pain in extremity [Recovered/Resolved]
  - Headache [Recovered/Resolved]
  - Pain [Recovered/Resolved]
